FAERS Safety Report 10172120 (Version 2)
Quarter: 2017Q2

REPORT INFORMATION
  Report Type: Spontaneous
  Country: CA (occurrence: CA)
  Receive Date: 20140515
  Receipt Date: 20170420
  Transmission Date: 20170829
  Serious: Yes (Life-Threatening, Other)
  Sender: FDA-Public Use
  Company Number: CA-009507513-1405CAN003654

PATIENT
  Age: 20 Year
  Sex: Female
  Weight: 106 kg

DRUGS (1)
  1. NUVARING [Suspect]
     Active Substance: ETHINYL ESTRADIOL\ETONOGESTREL
     Indication: CONTRACEPTION
     Dosage: 1 RING (ETHINYL ESTRADIOL: 0.015MG/DAY; ETONOGESTREL:0.12/DAY), INSERT FOR 3 WEEKS, REMOVE FOR 1WEEK
     Route: 067
     Dates: start: 20120608, end: 20131022

REACTIONS (3)
  - Chest pain [Unknown]
  - Dyspnoea [Unknown]
  - Pulmonary embolism [Unknown]

NARRATIVE: CASE EVENT DATE: 20130115
